FAERS Safety Report 5330939-4 (Version None)
Quarter: 2007Q2

REPORT INFORMATION
  Report Type: 
  Country: None (occurrence: None)
  Receive Date: 20070522
  Receipt Date: 20070510
  Transmission Date: 20071010
  Serious: Yes (Hospitalization)
  Sender: FDA-Public Use
  Company Number: FR-AMGEN-UK222795

PATIENT
  Sex: Female

DRUGS (3)
  1. KINERET [Suspect]
     Indication: JUVENILE ARTHRITIS
     Route: 058
     Dates: start: 20070101, end: 20070411
  2. CORTANCYL [Concomitant]
     Route: 065
  3. INDOMETHACIN [Concomitant]
     Route: 065

REACTIONS (9)
  - ABDOMINAL PAIN [None]
  - APHTHOUS STOMATITIS [None]
  - COUGH [None]
  - CROHN'S DISEASE [None]
  - DIARRHOEA [None]
  - PHARYNGOLARYNGEAL PAIN [None]
  - PYREXIA [None]
  - SKIN ULCER [None]
  - VOMITING [None]
